FAERS Safety Report 13055569 (Version 1)
Quarter: 2016Q4

REPORT INFORMATION
  Report Type: Spontaneous
  Country: US (occurrence: US)
  Receive Date: 20161222
  Receipt Date: 20161222
  Transmission Date: 20170207
  Serious: No
  Sender: FDA-Public Use
  Company Number: US-MYLANLABS-2015M1036818

PATIENT
  Sex: Female
  Weight: 88.89 kg

DRUGS (1)
  1. OXYBUTYNIN CHLORIDE EXTENDED-RELEASE TABLETS USP [Suspect]
     Active Substance: OXYBUTYNIN CHLORIDE
     Dosage: UNK

REACTIONS (2)
  - Medication error [Unknown]
  - No adverse event [Recovered/Resolved]
